FAERS Safety Report 9761649 (Version 1)
Quarter: 2013Q4

REPORT INFORMATION
  Report Type: Spontaneous
  Country: DE (occurrence: DE)
  Receive Date: 20131216
  Receipt Date: 20131216
  Transmission Date: 20140711
  Serious: Yes (Other)
  Sender: FDA-Public Use
  Company Number: DE-TEVA-450537USA

PATIENT
  Sex: Female

DRUGS (2)
  1. LEVACT [Suspect]
     Indication: BONE CANCER
     Dosage: UNKNOWN/D
     Route: 042
     Dates: start: 2013
  2. LEVACT [Suspect]
     Dosage: UNKNOWN/D
     Route: 042
     Dates: start: 201307

REACTIONS (8)
  - Blood pressure systolic increased [Unknown]
  - Feeling abnormal [Unknown]
  - Chapped lips [Unknown]
  - Fall [Unknown]
  - Heart rate increased [Not Recovered/Not Resolved]
  - Malignant neoplasm progression [Unknown]
  - Hyperhidrosis [Unknown]
  - Tumour marker increased [Unknown]
